FAERS Safety Report 25996740 (Version 2)
Quarter: 2025Q4

REPORT INFORMATION
  Report Type: Spontaneous
  Country: US (occurrence: US)
  Receive Date: 20251104
  Receipt Date: 20251107
  Transmission Date: 20260117
  Serious: Yes (Other)
  Sender: ALCON
  Company Number: US-ALCON LABORATORIES-ALC2025US006065

PATIENT
  Sex: Female

DRUGS (1)
  1. ACOLTREMON [Suspect]
     Active Substance: ACOLTREMON
     Indication: Product used for unknown indication
     Dosage: UNK
     Route: 047
     Dates: start: 20250919, end: 20251023

REACTIONS (3)
  - Cataract [Unknown]
  - Eye irritation [Unknown]
  - Ocular discomfort [Unknown]
